FAERS Safety Report 14673016 (Version 3)
Quarter: 2019Q1

REPORT INFORMATION
  Report Type: Spontaneous
  Country: US (occurrence: US)
  Receive Date: 20180323
  Receipt Date: 20190329
  Transmission Date: 20190417
  Serious: Yes (Other)
  Sender: FDA-Public Use
  Company Number: US-ASTRAZENECA-2018SE34784

PATIENT
  Age: 34 Year
  Sex: Male
  Weight: 108.9 kg

DRUGS (30)
  1. PROVENTIL HFA [Concomitant]
     Active Substance: ALBUTEROL SULFATE
     Dosage: 2 PUFFS QID AS NEEDED.
     Route: 065
  2. PEPCID [Concomitant]
     Active Substance: FAMOTIDINE
     Route: 048
  3. LOSARTAN. [Concomitant]
     Active Substance: LOSARTAN
     Route: 048
  4. AZITHROMYCIN ANHYDROUS. [Concomitant]
     Active Substance: AZITHROMYCIN ANHYDROUS
     Route: 048
  5. IBUPROFEN. [Concomitant]
     Active Substance: IBUPROFEN
     Route: 048
  6. ATORVASTATIN [Concomitant]
     Active Substance: ATORVASTATIN
  7. SOMA [Concomitant]
     Active Substance: CARISOPRODOL
     Dosage: 1/2 TAB BID
     Route: 048
  8. MOBIC [Concomitant]
     Active Substance: MELOXICAM
     Route: 048
  9. ALFUZOSIN [Concomitant]
     Active Substance: ALFUZOSIN
     Route: 048
  10. WELLBUTRIN [Concomitant]
     Active Substance: BUPROPION HYDROCHLORIDE
     Route: 048
  11. ADVAIR HFA [Concomitant]
     Active Substance: FLUTICASONE PROPIONATE\SALMETEROL XINAFOATE
     Dosage: 1 PUFF USING INHALER TWICE A DAY
     Route: 065
  12. MEDROL [Concomitant]
     Active Substance: METHYLPREDNISOLONE
     Dosage: AS REQUIRED
     Route: 065
  13. LORTAB [Concomitant]
     Active Substance: ACETAMINOPHEN\HYDROCODONE BITARTRATE
     Dosage: 10-500 MG EVERY 4-6 HRS AS NEEDED.
     Route: 048
  14. LYRICA [Concomitant]
     Active Substance: PREGABALIN
     Route: 048
  15. ZITHROMAX [Concomitant]
     Active Substance: AZITHROMYCIN DIHYDRATE
     Dosage: 2 PUFFS QID AS NEEDED.
     Route: 048
  16. FAMOTIDINE. [Concomitant]
     Active Substance: FAMOTIDINE
     Route: 048
     Dates: start: 20111010, end: 20130913
  17. ANTIVERT [Concomitant]
     Active Substance: MECLIZINE HYDROCHLORIDE
     Route: 048
  18. CELEBREX [Concomitant]
     Active Substance: CELECOXIB
     Route: 048
  19. LEVAQUIN [Concomitant]
     Active Substance: LEVOFLOXACIN
     Route: 048
  20. HYDROCODONE/ACETAMINOPHEN [Concomitant]
     Active Substance: ACETAMINOPHEN\HYDROCODONE
     Dosage: 10-500MG1.0DF EVERY 4 - 6 HOURS
     Route: 048
  21. PROTONIX [Suspect]
     Active Substance: PANTOPRAZOLE SODIUM
     Route: 048
  22. NEURONTIN [Concomitant]
     Active Substance: GABAPENTIN
     Dosage: 1-3 CAPSULE BY MOUTH AT BEDTIME
     Route: 048
  23. MECLIZINE [Concomitant]
     Active Substance: MECLIZINE HYDROCHLORIDE
     Route: 048
  24. OMEPRAZOLE. [Suspect]
     Active Substance: OMEPRAZOLE
     Dosage: GENERIC
     Route: 065
  25. PREDNISONE. [Concomitant]
     Active Substance: PREDNISONE
     Route: 048
  26. NEXIUM [Suspect]
     Active Substance: ESOMEPRAZOLE MAGNESIUM
     Route: 048
     Dates: start: 2008, end: 2013
  27. OMEPRAZOLE. [Suspect]
     Active Substance: OMEPRAZOLE
     Route: 048
  28. SINGULAIR [Concomitant]
     Active Substance: MONTELUKAST SODIUM
     Route: 048
  29. ALLEGRA [Concomitant]
     Active Substance: FEXOFENADINE HYDROCHLORIDE
     Route: 048
  30. FLEXERIL [Concomitant]
     Active Substance: CYCLOBENZAPRINE HYDROCHLORIDE
     Route: 048

REACTIONS (2)
  - Chronic kidney disease [Not Recovered/Not Resolved]
  - Renal failure [Unknown]

NARRATIVE: CASE EVENT DATE: 2013
